FAERS Safety Report 8366108-3 (Version None)
Quarter: 2012Q2

REPORT INFORMATION
  Report Type: 
  Country: None (occurrence: None)
  Receive Date: 20120517
  Receipt Date: 20120511
  Transmission Date: 20120825
  Serious: Yes (Other)
  Sender: FDA-Public Use
  Company Number: FR-BAYER-2012-033631

PATIENT
  Age: 77 Year
  Sex: Male
  Weight: 69 kg

DRUGS (4)
  1. PENTOXIFYLLINE [Suspect]
     Indication: PULMONARY EMBOLISM
  2. NEXAVAR [Suspect]
     Indication: THYROID CANCER
     Dosage: 800 MG, QD
     Route: 048
     Dates: start: 20090209
  3. LEVOTHYROXINE SODIUM [Concomitant]
     Indication: THYROIDECTOMY
     Dosage: 200 ?G, QD
     Route: 048
     Dates: start: 20050101
  4. NEXAVAR [Suspect]
     Dosage: DOSE WAS REDUCED.

REACTIONS (4)
  - DIPLOPIA [None]
  - PULMONARY EMBOLISM [None]
  - VISION BLURRED [None]
  - RETINAL VEIN THROMBOSIS [None]
